FAERS Safety Report 8858762 (Version 1)
Quarter: 2012Q4

REPORT INFORMATION
  Report Type: Spontaneous
  Country: US (occurrence: None)
  Receive Date: 20121023
  Receipt Date: 20121023
  Transmission Date: 20130627
  Serious: No
  Sender: FDA-Public Use
  Company Number: None

PATIENT
  Age: 66 Year
  Sex: Male
  Weight: 52 kg

DRUGS (2)
  1. AMOXICILLIN/CLAVULANATE POTASSIUM [Suspect]
     Indication: SPIDER BITE
     Dosage: 1 TAB BID PO
     Route: 048
     Dates: start: 20120727, end: 20120801
  2. CIPROFLOXACIN [Suspect]

REACTIONS (2)
  - Drug-induced liver injury [None]
  - Hepatitis [None]
